FAERS Safety Report 12074004 (Version 1)
Quarter: 2016Q1

REPORT INFORMATION
  Report Type: Report from Study
  Country: CA (occurrence: CA)
  Receive Date: 20160212
  Receipt Date: 20160212
  Transmission Date: 20160526
  Serious: Yes (Other)
  Sender: FDA-Public Use
  Company Number: PHHY2016CA017740

PATIENT
  Age: 34 Year
  Sex: Male

DRUGS (1)
  1. ILARIS [Suspect]
     Active Substance: CANAKINUMAB
     Indication: CRYOPYRIN ASSOCIATED PERIODIC SYNDROME
     Dosage: 150 MG, Q 8 WEEKS
     Route: 058
     Dates: start: 20140630

REACTIONS (4)
  - Nasopharyngitis [Unknown]
  - Laryngitis [Unknown]
  - Ocular hyperaemia [Unknown]
  - Chills [Unknown]

NARRATIVE: CASE EVENT DATE: 201601
